FAERS Safety Report 18155923 (Version 1)
Quarter: 2020Q3

REPORT INFORMATION
  Report Type: Spontaneous
  Country: US (occurrence: US)
  Receive Date: 20200815
  Receipt Date: 20200815
  Transmission Date: 20201103
  Serious: No
  Sender: FDA-Public Use
  Company Number: None

PATIENT
  Age: 12 Year
  Sex: Female

DRUGS (1)
  1. NORDITROPIN [Suspect]
     Active Substance: SOMATROPIN
     Route: 058
     Dates: start: 202002

REACTIONS (5)
  - Heart rate increased [None]
  - Chest pain [None]
  - Erythema [None]
  - Depression [None]
  - Nausea [None]

NARRATIVE: CASE EVENT DATE: 20200814
